FAERS Safety Report 9106701 (Version 1)
Quarter: 2013Q1

REPORT INFORMATION
  Report Type: Spontaneous
  Country: JP (occurrence: JP)
  Receive Date: 20130222
  Receipt Date: 20130222
  Transmission Date: 20140127
  Serious: Yes (Other)
  Sender: FDA-Public Use
  Company Number: JP-OTSUKA-JP-2013-10371

PATIENT
  Sex: 0

DRUGS (1)
  1. PLETAAL [Suspect]
     Route: 048

REACTIONS (1)
  - Nephrotic syndrome [Unknown]
